FAERS Safety Report 5271410-8 (Version None)
Quarter: 2007Q1

REPORT INFORMATION
  Report Type: 
  Country: None (occurrence: None)
  Receive Date: 20070316
  Receipt Date: 20070307
  Transmission Date: 20070707
  Serious: Yes (Hospitalization)
  Sender: FDA-Public Use
  Company Number: 237887

PATIENT
  Age: 66 Year
  Sex: Female

DRUGS (9)
  1. AVASTIN [Suspect]
     Indication: BREAST CANCER
  2. DOXORUBICIN HCL [Concomitant]
  3. CYCLOPHOSPHAMIDE [Concomitant]
  4. NEULASTA [Concomitant]
  5. ABRAXANE [Concomitant]
  6. ACETAMINOPHEN/DIPHENHYDRAMINE (ACETAMINOPHEN, DIPHENHYDRAMINE  HYDROCH [Concomitant]
  7. ACYCLOVIR [Concomitant]
  8. ATORVASTATIN (ATORVASTATIN CALCIUM) [Concomitant]
  9. BISOPROLOL FUMARATE AND HYDROCHLOROTHIAZIDE [Concomitant]

REACTIONS (2)
  - DRUG HYPERSENSITIVITY [None]
  - HERPES ZOSTER [None]
